FAERS Safety Report 20280142 (Version 1)
Quarter: 2021Q4

REPORT INFORMATION
  Report Type: Spontaneous
  Country: US (occurrence: None)
  Receive Date: 20211231
  Receipt Date: 20211231
  Transmission Date: 20220303
  Serious: No
  Sender: FDA-Public Use
  Company Number: None

PATIENT
  Age: 64 Year
  Sex: Male
  Weight: 76.5 kg

DRUGS (1)
  1. VALSARTAN AND HYDROCHLOROTHIAZIDE [Suspect]
     Active Substance: HYDROCHLOROTHIAZIDE\VALSARTAN
     Indication: Hypertension
     Dosage: FREQUENCY : DAILY;?
     Route: 048
     Dates: start: 20211208, end: 20211227

REACTIONS (6)
  - Product substitution issue [None]
  - Blood pressure increased [None]
  - Flushing [None]
  - Epistaxis [None]
  - Headache [None]
  - Paradoxical drug reaction [None]

NARRATIVE: CASE EVENT DATE: 20211227
